FAERS Safety Report 10420347 (Version 1)
Quarter: 2014Q3

REPORT INFORMATION
  Report Type: Spontaneous
  Country: ES (occurrence: None)
  Receive Date: 20140812
  Receipt Date: 20140812
  Transmission Date: 20150326
  Serious: Yes (Hospitalization)
  Sender: FDA-Public Use
  Company Number: US-IGSAIG002459

PATIENT
  Age: 28 Year
  Sex: Male

DRUGS (2)
  1. DEPOCYTE (CYTARABINE) LIPOSOME INJECTABLE SUSPENSION, MG [Suspect]
     Active Substance: CYTARABINE
     Indication: ACUTE LEUKAEMIA
     Route: 037
     Dates: start: 2014, end: 20140521
  2. FLEBOGAMMA [Suspect]
     Active Substance: HUMAN IMMUNOGLOBULIN G
     Indication: ERYTHEMA INFECTIOSUM
     Route: 042
     Dates: start: 20140625, end: 20140726

REACTIONS (1)
  - Cauda equina syndrome [None]

NARRATIVE: CASE EVENT DATE: 201406
